FAERS Safety Report 24228260 (Version 3)
Quarter: 2025Q3

REPORT INFORMATION
  Report Type: Spontaneous
  Country: EU (occurrence: EU)
  Receive Date: 20240820
  Receipt Date: 20250811
  Transmission Date: 20251021
  Serious: Yes (Hospitalization, Disabling)
  Sender: SUNOVION
  Company Number: EU-RICHTER-2024-GR-008628

PATIENT
  Age: 41 Year
  Sex: Female

DRUGS (4)
  1. ESTRADIOL\NORETHINDRONE ACETATE\RELUGOLIX [Suspect]
     Active Substance: ESTRADIOL\NORETHINDRONE ACETATE\RELUGOLIX
     Indication: Uterine leiomyoma
     Dosage: 1 PILL/DAY
     Route: 048
     Dates: start: 20240627, end: 20240802
  2. Nortriptyline hydrochloride;Pregabalin [Concomitant]
  3. METHYLCOBALAMIN [Concomitant]
     Active Substance: METHYLCOBALAMIN
  4. Scat [Concomitant]

REACTIONS (1)
  - Drug ineffective [Recovered/Resolved]
